FAERS Safety Report 23353763 (Version 1)
Quarter: 2024Q1

REPORT INFORMATION
  Report Type: Spontaneous
  Country: US (occurrence: US)
  Receive Date: 20240101
  Receipt Date: 20240101
  Transmission Date: 20240410
  Serious: No
  Sender: FDA-Public Use
  Company Number: US-PURDUE PHARMA-USA-2023-0305522

PATIENT
  Sex: Female

DRUGS (7)
  1. OXYCODONE HYDROCHLORIDE [Suspect]
     Active Substance: OXYCODONE HYDROCHLORIDE
     Indication: Infusion site pain
     Dosage: PRN
     Route: 065
  2. OXYCODONE HYDROCHLORIDE [Suspect]
     Active Substance: OXYCODONE HYDROCHLORIDE
     Indication: Analgesic therapy
  3. OXYCODONE HYDROCHLORIDE [Suspect]
     Active Substance: OXYCODONE HYDROCHLORIDE
     Indication: Arthralgia
  4. OXYCODONE HYDROCHLORIDE [Suspect]
     Active Substance: OXYCODONE HYDROCHLORIDE
     Indication: Pain in extremity
  5. BUTRANS [Suspect]
     Active Substance: BUPRENORPHINE
     Indication: Infusion site pain
     Dosage: UNK
     Route: 062
  6. BUTRANS [Suspect]
     Active Substance: BUPRENORPHINE
     Indication: Arthralgia
  7. BUTRANS [Suspect]
     Active Substance: BUPRENORPHINE
     Indication: Pain in extremity

REACTIONS (1)
  - Therapy non-responder [Unknown]
